FAERS Safety Report 9494150 (Version 4)
Quarter: 2014Q2

REPORT INFORMATION
  Report Type: Spontaneous
  Country: US (occurrence: None)
  Receive Date: 20130828
  Receipt Date: 20140630
  Transmission Date: 20141212
  Serious: Yes (Hospitalization, Other)
  Sender: FDA-Public Use
  Company Number: 2011US000141

PATIENT
  Age: 64 Year
  Sex: Female
  Weight: 76.8 kg

DRUGS (18)
  1. PONATINIB [Suspect]
     Indication: CHRONIC MYELOID LEUKAEMIA
     Route: 048
     Dates: start: 20090131, end: 20111214
  2. PONATINIB [Suspect]
     Indication: HAEMATOLOGICAL MALIGNANCY
     Route: 048
     Dates: start: 20090131, end: 20111214
  3. AMLODIPINE (AMLODIPINE) [Concomitant]
  4. POTASSIUM CHLORIDE (POTASSIUM CHLORIDE) [Concomitant]
  5. METOPROLOL SUCCINATE (METOPROLOL SUCCINATE) [Concomitant]
  6. DOXYCYCLINE HYCLATE (DOXYCYCLINE HYCLATE) [Concomitant]
  7. ALBUTEROL (ALBUTEROL) [Concomitant]
  8. GABAPENTIN (GABAPENTIN) [Concomitant]
  9. PRAZOSIN (PRAZOSIN) [Concomitant]
  10. FLUTICASONE W/SALMETEROL (FLUTICASONE W/SALMETEROL) [Concomitant]
  11. FLUTICASONE (FLUTICASONE) [Concomitant]
  12. LOVASTATIN (LOVASTATIN) [Concomitant]
  13. SERTRALINE (SERTRALINE) [Concomitant]
  14. FUROSEMIDE (FUROSEMIDE) [Concomitant]
  15. CLOPIDOGREL (CLOPIDOGREL) [Concomitant]
  16. FISH OIL (FISH OIL) [Concomitant]
  17. ASPIRIN (ASPIRIN) [Concomitant]
  18. VITAMIN D (VITAMIN D) [Concomitant]

REACTIONS (10)
  - Peripheral ischaemia [None]
  - Stent malfunction [None]
  - Blood glucose increased [None]
  - Peripheral arterial occlusive disease [None]
  - Peripheral artery stenosis [None]
  - Femoral artery occlusion [None]
  - Intermittent claudication [None]
  - Peripheral ischaemia [None]
  - Hypoaesthesia [None]
  - Hypoaesthesia [None]
